FAERS Safety Report 8135739-8 (Version None)
Quarter: 2012Q1

REPORT INFORMATION
  Report Type: 
  Country: None (occurrence: None)
  Receive Date: 20120210
  Receipt Date: 20120125
  Transmission Date: 20120608
  Serious: Yes (Death)
  Sender: FDA-Public Use
  Company Number: OPIR20120006

PATIENT
  Age: 25 Year
  Sex: Male

DRUGS (5)
  1. OPANA [Suspect]
     Indication: COMPLETED SUICIDE
     Dosage: ORAL
     Route: 048
  2. OXYCODONE HCL [Suspect]
     Indication: COMPLETED SUICIDE
     Dosage: ORAL
     Route: 048
  3. ACETAMINOPHEN [Suspect]
     Indication: COMPLETED SUICIDE
     Dosage: ORAL
     Route: 048
  4. ZOLPIDEM TARTRATE [Suspect]
     Indication: COMPLETED SUICIDE
     Dosage: ORAL
     Route: 048
  5. KETOROLAC TROMETHAMINE [Suspect]
     Indication: COMPLETED SUICIDE
     Dosage: ORAL
     Route: 048

REACTIONS (3)
  - COMPLETED SUICIDE [None]
  - RESPIRATORY ARREST [None]
  - CARDIAC ARREST [None]
